FAERS Safety Report 10729118 (Version 4)
Quarter: 2018Q2

REPORT INFORMATION
  Report Type: Report from Study
  Country: US (occurrence: US)
  Receive Date: 20150122
  Receipt Date: 20180605
  Transmission Date: 20180711
  Serious: Yes (Hospitalization)
  Sender: FDA-Public Use
  Company Number: US-ROCHE-1520332

PATIENT
  Age: 58 Year
  Sex: Female
  Weight: 55.9 kg

DRUGS (17)
  1. KEFLEX [Concomitant]
     Active Substance: CEPHALEXIN
     Route: 065
  2. PERTUZUMAB. [Suspect]
     Active Substance: PERTUZUMAB
     Dosage: MAINTAINCE DOSE?DATE OF LAST DOSE ON 26/NOV/2014
     Route: 042
  3. INDERAL [Concomitant]
     Active Substance: PROPRANOLOL HYDROCHLORIDE
     Route: 065
     Dates: start: 1994
  4. NEUPOGEN [Concomitant]
     Active Substance: FILGRASTIM
  5. COMPAZINE [Concomitant]
     Active Substance: PROCHLORPERAZINE MALEATE
     Route: 065
  6. TRASTUZUMAB. [Suspect]
     Active Substance: TRASTUZUMAB
     Indication: HER-2 POSITIVE BREAST CANCER
     Dosage: LAODING DOSE
     Route: 042
     Dates: start: 201406
  7. TRASTUZUMAB. [Suspect]
     Active Substance: TRASTUZUMAB
     Dosage: MAINTANCE DOSE
     Route: 042
     Dates: start: 201406
  8. 5-FLUOROURACIL [Suspect]
     Active Substance: FLUOROURACIL
     Indication: HER-2 POSITIVE BREAST CANCER
     Dosage: DATE OF LAST DOSE ON 26/NOV/2014
     Route: 065
     Dates: start: 201406
  9. EXCEDRIN [Concomitant]
     Active Substance: ACETAMINOPHEN\ASPIRIN\CAFFEINE
     Dosage: TAKE 2 TABLETS BY MOUTH AS NEEDED
     Route: 065
     Dates: start: 1994
  10. SYSTANE (HYPROMELLOSE 2910 (4000 MPA.S)) [Concomitant]
     Active Substance: HYPROMELLOSE 2910 (4000 MPA.S)
     Dosage: APPLY TO EYE. PRN
     Route: 065
  11. VALTREX [Concomitant]
     Active Substance: VALACYCLOVIR HYDROCHLORIDE
     Indication: HYPERSENSITIVITY
     Dosage: 1 TABLET BY MOUTH
     Route: 065
  12. PERTUZUMAB. [Suspect]
     Active Substance: PERTUZUMAB
     Indication: HER-2 POSITIVE BREAST CANCER
     Dosage: LOADING DOSE
     Route: 042
     Dates: start: 201406
  13. PACLITAXEL. [Suspect]
     Active Substance: PACLITAXEL
     Indication: HER-2 POSITIVE BREAST CANCER
     Dosage: DATE OF LAST DOSE ON 26/NOV/2014
     Route: 065
     Dates: start: 20140606
  14. EPIRUBICIN [Suspect]
     Active Substance: EPIRUBICIN
     Indication: HER-2 POSITIVE BREAST CANCER
     Dosage: DATE OF LAST DOSE ON 26/NOV/2014
     Route: 065
     Dates: start: 201406
  15. NEUPOGEN [Concomitant]
     Active Substance: FILGRASTIM
  16. TRASTUZUMAB. [Suspect]
     Active Substance: TRASTUZUMAB
     Dosage: FOR WEEKS 13-24, (4 DOSES TOTAL) (AS PER PROTOCOL)?DATE OF LAST DOSE ON 26/NOV/2014
     Route: 042
     Dates: start: 201406
  17. CYCLOPHOSPHAMIDE. [Suspect]
     Active Substance: CYCLOPHOSPHAMIDE
     Indication: HER-2 POSITIVE BREAST CANCER
     Dosage: DATE OF LAST DOSE ON 26/NOV/2014
     Route: 065
     Dates: start: 201406

REACTIONS (2)
  - Device related infection [Recovered/Resolved]
  - Embolism [Unknown]

NARRATIVE: CASE EVENT DATE: 20140820
